FAERS Safety Report 25390512 (Version 2)
Quarter: 2025Q4

REPORT INFORMATION
  Report Type: Spontaneous
  Country: JP (occurrence: JP)
  Receive Date: 20250603
  Receipt Date: 20251015
  Transmission Date: 20260117
  Serious: Yes (Other)
  Sender: BAYER HEALTHCARE PHARMACEUTICALS INC.
  Company Number: JP-BAYER-2025A073249

PATIENT
  Age: 9 Decade
  Sex: Female

DRUGS (4)
  1. ADEMPAS [Suspect]
     Active Substance: RIOCIGUAT
     Indication: Pulmonary hypertension
     Dosage: 7.5MG
     Route: 048
  2. XARELTO [Concomitant]
     Active Substance: RIVAROXABAN
     Indication: Anticoagulant therapy
  3. FUROSEMIDE [Concomitant]
     Active Substance: FUROSEMIDE
  4. OXYGEN [Concomitant]
     Active Substance: OXYGEN
     Dosage: 4L

REACTIONS (1)
  - Pulmonary hypertension [Recovering/Resolving]
